FAERS Safety Report 15567179 (Version 2)
Quarter: 2018Q4

REPORT INFORMATION
  Report Type: Report from Study
  Country: US (occurrence: US)
  Receive Date: 20181030
  Receipt Date: 20181121
  Transmission Date: 20190205
  Serious: Yes (Hospitalization)
  Sender: FDA-Public Use
  Company Number: US-TAIHO ONCOLOGY  INC-EU-2018-01866

PATIENT
  Age: 63 Year
  Sex: Male

DRUGS (10)
  1. MORPHINE [Concomitant]
     Active Substance: MORPHINE
  2. GABAPENTIN. [Concomitant]
     Active Substance: GABAPENTIN
     Route: 048
  3. ZOFRAN [Concomitant]
     Active Substance: ONDANSETRON HYDROCHLORIDE
  4. PROCHLORPERAZINE. [Concomitant]
     Active Substance: PROCHLORPERAZINE
  5. VITAMIN C [Concomitant]
     Active Substance: ASCORBIC ACID
  6. PERCOCET [Concomitant]
     Active Substance: ACETAMINOPHEN\OXYCODONE HYDROCHLORIDE
     Dosage: 10MG/325MG
     Route: 048
  7. LISINOPRIL. [Concomitant]
     Active Substance: LISINOPRIL
     Dates: end: 201810
  8. LONSURF [Suspect]
     Active Substance: TIPIRACIL HYDROCHLORIDE\TRIFLURIDINE
     Indication: COLON CANCER STAGE IV
     Dosage: CURRENT CYCLE UNKNOWN
     Route: 048
     Dates: start: 20180718, end: 201810
  9. DOXYCYCLINE HYC [Concomitant]
     Active Substance: DOXYCYCLINE HYCLATE
  10. VITAMIN B6 [Concomitant]
     Active Substance: PYRIDOXINE HYDROCHLORIDE

REACTIONS (6)
  - Encephalopathy [Recovered/Resolved]
  - Electrolyte imbalance [Unknown]
  - Hepatic enzyme abnormal [Not Recovered/Not Resolved]
  - Hypotension [Recovered/Resolved]
  - Acute kidney injury [Not Recovered/Not Resolved]
  - Malnutrition [Unknown]

NARRATIVE: CASE EVENT DATE: 20181008
